FAERS Safety Report 8148247-5 (Version None)
Quarter: 2012Q1

REPORT INFORMATION
  Report Type: 
  Country: None (occurrence: None)
  Receive Date: 20120218
  Receipt Date: 20110510
  Transmission Date: 20120608
  Serious: No
  Sender: FDA-Public Use
  Company Number: US-ALLERGAN-1106430US

PATIENT
  Age: 69 Year
  Sex: Female

DRUGS (3)
  1. NORCO [Concomitant]
     Indication: PRODUCT USED FOR UNKNOWN INDICATION
     Dosage: 2 DF, QD
     Route: 048
  2. BOTULINUM TOXIN TYPE A [Suspect]
     Indication: MIGRAINE
     Dosage: UNK
     Dates: start: 20110419, end: 20110419
  3. BOTULINUM TOXIN TYPE A [Suspect]
     Indication: HEADACHE

REACTIONS (2)
  - EYELID PTOSIS [None]
  - HEADACHE [None]
